FAERS Safety Report 4849177-4 (Version None)
Quarter: 2005Q4

REPORT INFORMATION
  Report Type: 
  Country: None (occurrence: None)
  Receive Date: 20051209
  Receipt Date: 20051005
  Transmission Date: 20060501
  Serious: Yes (Hospitalization)
  Sender: FDA-Public Use
  Company Number: US-MERCK-0510USA04772

PATIENT
  Age: 56 Year
  Sex: Female
  Weight: 71 kg

DRUGS (12)
  1. VIOXX [Suspect]
     Indication: ARTHRITIS
     Route: 048
     Dates: start: 20020101, end: 20040101
  2. COZAAR [Concomitant]
     Route: 048
  3. TOPROL-XL [Concomitant]
     Route: 048
  4. PREMARIN [Concomitant]
     Route: 065
  5. LORTAB [Concomitant]
     Route: 065
  6. ASPIRIN [Concomitant]
     Route: 065
  7. PLAVIX [Concomitant]
     Route: 065
  8. FOLIC ACID [Concomitant]
     Route: 065
  9. PREVACID [Concomitant]
     Route: 065
  10. KLONOPIN [Concomitant]
     Route: 065
  11. XANAX [Concomitant]
     Route: 065
  12. AMBIEN [Concomitant]
     Route: 065

REACTIONS (10)
  - ANGINA PECTORIS [None]
  - ANXIETY [None]
  - ARTERIOSCLEROSIS CORONARY ARTERY [None]
  - ARTHRITIS [None]
  - CARDIOVASCULAR DISORDER [None]
  - CORONARY ARTERY DISEASE [None]
  - DIZZINESS [None]
  - HYPOTENSION [None]
  - LOSS OF CONSCIOUSNESS [None]
  - VOMITING [None]
